FAERS Safety Report 18228067 (Version 1)
Quarter: 2020Q3

REPORT INFORMATION
  Report Type: Spontaneous
  Country: US (occurrence: US)
  Receive Date: 20200903
  Receipt Date: 20200903
  Transmission Date: 20201103
  Serious: Yes (Other)
  Sender: FDA-Public Use
  Company Number: US-ASTRAZENECA-2020SF11070

PATIENT
  Age: 68 Year
  Sex: Female

DRUGS (1)
  1. FASENRA [Suspect]
     Active Substance: BENRALIZUMAB
     Indication: ASTHMA
     Dosage: 30 MG PER ML, EVERY FOUR WEEKS FOR FIRST 3 DOSES THEN EVERY EIGHT WEEKS AFTER
     Route: 058
     Dates: start: 20200825

REACTIONS (2)
  - Chills [Unknown]
  - Serum sickness [Unknown]

NARRATIVE: CASE EVENT DATE: 20200825
